FAERS Safety Report 15399854 (Version 3)
Quarter: 2018Q4

REPORT INFORMATION
  Report Type: Report from Study
  Country: US (occurrence: US)
  Receive Date: 20180919
  Receipt Date: 20181204
  Transmission Date: 20190204
  Serious: Yes (Hospitalization, Other)
  Sender: FDA-Public Use
  Company Number: US-BRISTOL-MYERS SQUIBB COMPANY-BMS-2018-084389

PATIENT
  Age: 65 Year
  Sex: Female
  Weight: 68.5 kg

DRUGS (4)
  1. BEVACIZUMAB. [Suspect]
     Active Substance: BEVACIZUMAB
     Indication: OVARIAN CANCER
     Dosage: 660 MG, Q2WK
     Route: 042
     Dates: start: 20170911, end: 20180202
  2. BEVACIZUMAB. [Suspect]
     Active Substance: BEVACIZUMAB
     Indication: PRODUCT USED FOR UNKNOWN INDICATION
     Dosage: UNK UNK, Q3WK
     Route: 065
     Dates: start: 20180711
  3. NIVOLUMAB [Suspect]
     Active Substance: NIVOLUMAB
     Indication: OVARIAN CANCER
     Dosage: 240 MG, Q2WK
     Route: 042
     Dates: start: 20170911, end: 20180202
  4. OMEGA-3 FATTY ACIDS [Concomitant]
     Active Substance: OMEGA-3 FATTY ACIDS
     Indication: PRODUCT USED FOR UNKNOWN INDICATION
     Dosage: UNK
     Route: 048
     Dates: start: 20160626

REACTIONS (2)
  - Drug-induced liver injury [Recovered/Resolved]
  - Myelodysplastic syndrome [Unknown]

NARRATIVE: CASE EVENT DATE: 20180201
